FAERS Safety Report 17004593 (Version 1)
Quarter: 2019Q4

REPORT INFORMATION
  Report Type: Spontaneous
  Country: US (occurrence: US)
  Receive Date: 20191107
  Receipt Date: 20191107
  Transmission Date: 20200122
  Serious: Yes (Life-Threatening, Hospitalization)
  Sender: FDA-Public Use
  Company Number: US-MYLANLABS-2019M1105945

PATIENT
  Age: 15 Year
  Sex: Female

DRUGS (1)
  1. AMLODIPINE [Suspect]
     Active Substance: AMLODIPINE BESYLATE
     Indication: HEADACHE
     Dosage: UNK
     Route: 048

REACTIONS (13)
  - Respiratory distress [Recovered/Resolved]
  - Respiratory failure [Recovered/Resolved]
  - Accidental exposure to product [Recovered/Resolved]
  - Shock [Recovered/Resolved]
  - Acute kidney injury [Recovered/Resolved]
  - Toxicity to various agents [Recovered/Resolved]
  - Circulatory collapse [Recovered/Resolved]
  - Multiple organ dysfunction syndrome [Recovered/Resolved]
  - Tongue oedema [Recovered/Resolved]
  - Accidental overdose [Recovered/Resolved]
  - Lactic acidosis [Recovered/Resolved]
  - Harlequin syndrome [Recovered/Resolved]
  - Pulmonary oedema [Recovered/Resolved]
